FAERS Safety Report 5584212-X (Version None)
Quarter: 2008Q1

REPORT INFORMATION
  Report Type: 
  Country: None (occurrence: None)
  Receive Date: 20080108
  Receipt Date: 20071226
  Transmission Date: 20080703
  Serious: Yes (Death)
  Sender: FDA-Public Use
  Company Number: KE-GILEAD-2007-0013679

PATIENT
  Sex: Female
  Weight: 1.4 kg

DRUGS (28)
  1. TRUVADA [Suspect]
     Indication: DRUG EXPOSURE DURING PREGNANCY
     Route: 064
     Dates: start: 20061107, end: 20070828
  2. TRUVADA [Suspect]
     Route: 064
     Dates: start: 20060929, end: 20061030
  3. LOPINAVIR AND RITONAVIR [Suspect]
     Indication: DRUG EXPOSURE DURING PREGNANCY
     Route: 064
     Dates: start: 20061107, end: 20070828
  4. NEVIRAPINE [Suspect]
     Indication: DRUG EXPOSURE DURING PREGNANCY
     Route: 064
     Dates: start: 20061014, end: 20061030
  5. NEVIRAPINE [Suspect]
     Route: 064
     Dates: start: 20060929, end: 20061013
  6. VITACAP [Concomitant]
     Indication: DRUG EXPOSURE DURING PREGNANCY
     Route: 064
     Dates: end: 20070828
  7. ZINACEF [Concomitant]
     Indication: DRUG EXPOSURE DURING PREGNANCY
     Route: 064
     Dates: end: 20070828
  8. FLAGYL [Concomitant]
     Indication: DRUG EXPOSURE DURING PREGNANCY
     Route: 064
     Dates: end: 20070828
  9. CEFTRIAXONE [Concomitant]
     Indication: SEPSIS NEONATAL
     Route: 042
     Dates: start: 20070828
  10. AMIKACIN [Concomitant]
     Indication: SEPSIS NEONATAL
     Route: 042
     Dates: start: 20070828
  11. VITAMIN K [Concomitant]
     Route: 065
  12. NEVIRAPINE [Concomitant]
     Indication: PROPHYLAXIS AGAINST HIV INFECTION
     Route: 065
  13. ZIDOVUDINE [Concomitant]
     Indication: PROPHYLAXIS AGAINST HIV INFECTION
     Route: 065
     Dates: end: 20070828
  14. DIFLUCAN [Concomitant]
     Route: 064
     Dates: start: 20061026
  15. ZINNAT [Concomitant]
     Route: 064
     Dates: start: 20061220, end: 20061230
  16. ZANTAC [Concomitant]
     Route: 064
     Dates: start: 20070326, end: 20070410
  17. ZANTAC [Concomitant]
     Route: 062
     Dates: start: 20070221, end: 20070307
  18. ZANTAC [Concomitant]
     Route: 064
     Dates: start: 20061222, end: 20070105
  19. CETRIZINE [Concomitant]
     Route: 064
     Dates: start: 20070116, end: 20070123
  20. SUPRAPEN [Concomitant]
     Route: 064
     Dates: start: 20070129, end: 20070205
  21. SUPRAPEN [Concomitant]
     Route: 064
     Dates: start: 20070221, end: 20070228
  22. MELOXICAM [Concomitant]
     Route: 064
     Dates: start: 20070129
  23. PASCALIUM [Concomitant]
     Route: 064
     Dates: start: 20070221, end: 20070307
  24. BETADINE [Concomitant]
     Route: 064
     Dates: start: 20070221, end: 20070307
  25. CANDID B CREAM [Concomitant]
     Route: 064
     Dates: start: 20070326, end: 20070410
  26. DEPO-PROVERA [Concomitant]
     Route: 064
     Dates: start: 20070326, end: 20070723
  27. CELESTAMINE TAB [Concomitant]
     Route: 064
     Dates: start: 20070528, end: 20070601
  28. AMOXIL [Concomitant]
     Route: 064
     Dates: start: 20070528, end: 20070601

REACTIONS (1)
  - DEATH NEONATAL [None]
